FAERS Safety Report 10733071 (Version 2)
Quarter: 2015Q1

REPORT INFORMATION
  Report Type: Spontaneous
  Country: US (occurrence: None)
  Receive Date: 20150120
  Receipt Date: 20150204
  Transmission Date: 20150721
  Serious: Yes (Hospitalization, Other)
  Sender: FDA-Public Use
  Company Number: US2015001148

PATIENT
  Age: 42 Year
  Sex: Female
  Weight: 133.3 kg

DRUGS (1)
  1. ABACAVIRSULPHATE DOLUTEGRAVIR LAMIVUDINE [Suspect]
     Active Substance: ABACAVIR SULFATE\DOLUTEGRAVIR SODIUM\LAMIVUDINE
     Indication: HIV INFECTION
     Dosage: 1 UNK
     Route: 048
     Dates: start: 20140805

REACTIONS (1)
  - Infected skin ulcer [None]

NARRATIVE: CASE EVENT DATE: 20141229
